FAERS Safety Report 9088322 (Version 1)
Quarter: 2013Q1

REPORT INFORMATION
  Report Type: Spontaneous
  Country: BE (occurrence: BE)
  Receive Date: 20130201
  Receipt Date: 20130201
  Transmission Date: 20140127
  Serious: Yes (Hospitalization)
  Sender: FDA-Public Use
  Company Number: BE-B.I. PHARMACEUTICALS,INC./RIDGEFIELD-2013-BL-00052BL

PATIENT
  Sex: Male

DRUGS (5)
  1. PRADAXA [Suspect]
     Indication: ATRIAL FIBRILLATION
     Dosage: 220 MG
     Dates: start: 201210, end: 20130124
  2. EMCONCOR [Concomitant]
     Indication: HYPERTENSION
  3. CORDARONE [Concomitant]
     Indication: HEART RATE
  4. CRESTOR [Concomitant]
     Indication: HYPERCHOLESTEROLAEMIA
  5. CASODEX [Concomitant]
     Indication: PROSTATE CANCER

REACTIONS (2)
  - Rectal haemorrhage [Not Recovered/Not Resolved]
  - Renal failure acute [Not Recovered/Not Resolved]
